FAERS Safety Report 10986853 (Version 1)
Quarter: 2015Q1

REPORT INFORMATION
  Report Type: Spontaneous
  Country: CA (occurrence: None)
  Receive Date: 20150302
  Receipt Date: 20150302
  Transmission Date: 20150721
  Serious: Yes (Other)
  Sender: FDA-Public Use
  Company Number: 2014SYM00019

PATIENT
  Sex: Male

DRUGS (3)
  1. CRESTOR (ROSUVASTATIN SODIUM) [Concomitant]
  2. PROSCAR [Concomitant]
     Active Substance: FINASTERIDE
  3. ACEON [Suspect]
     Active Substance: PERINDOPRIL ERBUMINE
     Indication: PRODUCT USED FOR UNKNOWN INDICATION

REACTIONS (3)
  - Swollen tongue [None]
  - Localised oedema [None]
  - Hypersensitivity [None]

NARRATIVE: CASE EVENT DATE: 20140426
